FAERS Safety Report 13763953 (Version 2)
Quarter: 2017Q3

REPORT INFORMATION
  Report Type: Spontaneous
  Country: FR (occurrence: FR)
  Receive Date: 20170718
  Receipt Date: 20170809
  Transmission Date: 20171127
  Serious: Yes (Hospitalization)
  Sender: FDA-Public Use
  Company Number: FR-PFIZER INC-2017304003

PATIENT
  Age: 58 Year
  Sex: Female

DRUGS (5)
  1. DAFALGAN [Concomitant]
     Active Substance: ACETAMINOPHEN
     Dosage: 1 G, 3X/DAY
     Route: 048
     Dates: start: 20170317
  2. DUPHALAC [Concomitant]
     Active Substance: LACTULOSE
     Dosage: 1 TO 4 DF, DAILY
     Route: 048
  3. AROMASINE [Suspect]
     Active Substance: EXEMESTANE
     Indication: INVASIVE DUCTAL BREAST CARCINOMA
     Dosage: 25 MG, 1X/DAY
     Route: 048
     Dates: start: 20170317, end: 20170630
  4. AFINITOR [Suspect]
     Active Substance: EVEROLIMUS
     Indication: INVASIVE DUCTAL BREAST CARCINOMA
     Dosage: 5 MG, 1X/DAY
     Route: 048
     Dates: start: 20170317, end: 20170630
  5. ZOMETA [Suspect]
     Active Substance: ZOLEDRONIC ACID
     Indication: PROPHYLAXIS
     Dosage: 1 DF, MONTHLY
     Route: 041
     Dates: start: 20150729

REACTIONS (1)
  - Interstitial lung disease [Not Recovered/Not Resolved]

NARRATIVE: CASE EVENT DATE: 201704
